FAERS Safety Report 8590105-6 (Version None)
Quarter: 2012Q3

REPORT INFORMATION
  Report Type: 
  Country: None (occurrence: None)
  Receive Date: 20120813
  Receipt Date: 20120803
  Transmission Date: 20120928
  Serious: Yes (Other)
  Sender: FDA-Public Use
  Company Number: FR-BAYER-2012-079603

PATIENT
  Age: 38 Year
  Sex: Female
  Weight: 52 kg

DRUGS (2)
  1. LEVONORGESTREL [Concomitant]
     Dosage: 1 DF, QD
     Route: 048
     Dates: start: 20120601, end: 20120730
  2. MIRENA [Suspect]
     Indication: CONTRACEPTION
     Dosage: UNK
     Dates: start: 20120731, end: 20120803

REACTIONS (7)
  - URTICARIA [None]
  - ALLERGIC OEDEMA [None]
  - PARAESTHESIA OF GENITAL FEMALE [None]
  - PRESYNCOPE [None]
  - ANGIOEDEMA [None]
  - PROCEDURAL PAIN [None]
  - PRURITUS [None]
